FAERS Safety Report 8127854-X (Version None)
Quarter: 2012Q1

REPORT INFORMATION
  Report Type: 
  Country: None (occurrence: None)
  Receive Date: 20120210
  Receipt Date: 20110823
  Transmission Date: 20120608
  Serious: Yes (Other)
  Sender: FDA-Public Use
  Company Number: US-GLAXOSMITHKLINE-A0943253A

PATIENT
  Sex: Female

DRUGS (1)
  1. PAXIL [Suspect]
     Indication: ANXIETY DISORDER
     Dosage: 20MG PER DAY
     Route: 065
     Dates: start: 20080101, end: 20110801

REACTIONS (4)
  - PARAESTHESIA [None]
  - WITHDRAWAL SYNDROME [None]
  - DIABETES MELLITUS [None]
  - WEIGHT INCREASED [None]
